FAERS Safety Report 26126800 (Version 1)
Quarter: 2025Q4

REPORT INFORMATION
  Report Type: Spontaneous
  Country: US (occurrence: US)
  Receive Date: 20251205
  Receipt Date: 20251205
  Transmission Date: 20260117
  Serious: Yes (Hospitalization, Other)
  Sender: TONIX PHARMACEUTICALS
  Company Number: US-TONIX MEDICINES-2025TNX00061

PATIENT
  Age: 57 Year
  Sex: Female

DRUGS (2)
  1. TONMYA [Suspect]
     Active Substance: CYCLOBENZAPRINE HYDROCHLORIDE
     Indication: Product used for unknown indication
     Route: 065
  2. FENTANYL [Suspect]
     Active Substance: FENTANYL
     Indication: Serotonin syndrome
     Route: 065

REACTIONS (3)
  - Serotonin syndrome [Unknown]
  - Urinary retention [Unknown]
  - Intentional overdose [Unknown]
